FAERS Safety Report 11840510 (Version 1)
Quarter: 2015Q4

REPORT INFORMATION
  Report Type: Spontaneous
  Country: US (occurrence: US)
  Receive Date: 20151216
  Receipt Date: 20151216
  Transmission Date: 20160305
  Serious: No
  Sender: FDA-Public Use
  Company Number: US-ELI_LILLY_AND_COMPANY-US201512000271

PATIENT
  Sex: Male
  Weight: 74.56 kg

DRUGS (2)
  1. ADCIRCA [Suspect]
     Active Substance: TADALAFIL
     Indication: PRODUCT USED FOR UNKNOWN INDICATION
     Dosage: UNK
     Route: 065
  2. REMODULIN [Suspect]
     Active Substance: TREPROSTINIL
     Indication: PULMONARY ARTERIAL HYPERTENSION
     Dosage: 80 DF, UNKNOWN
     Route: 042
     Dates: start: 20140519

REACTIONS (3)
  - Fatigue [Unknown]
  - Drug dose omission [Unknown]
  - Dyspnoea [Unknown]
